FAERS Safety Report 8557054-0 (Version None)
Quarter: 2012Q3

REPORT INFORMATION
  Report Type: 
  Country: None (occurrence: None)
  Receive Date: 20120801
  Receipt Date: 20120717
  Transmission Date: 20120928
  Serious: Yes (Hospitalization)
  Sender: FDA-Public Use
  Company Number: GB-ROCHE-1089340

PATIENT
  Sex: Female
  Weight: 70.4 kg

DRUGS (9)
  1. AMLODIPINE [Concomitant]
     Dates: start: 20120101
  2. SENNA-MINT WAF [Concomitant]
     Dates: start: 20120324
  3. PERTUZUMAB [Suspect]
     Indication: BREAST CANCER
     Dosage: LAST DOSE PRIOR TO SAE:29/JUN/2012, LOADING DOSE
     Route: 042
     Dates: start: 20120601
  4. LANSOPRAZOLE [Concomitant]
     Dates: start: 20120612
  5. HERCEPTIN [Suspect]
     Indication: BREAST CANCER
     Dosage: LAST DOSE PRIOR TO SAE:29/JUN/2012, LOADING DOSE
     Route: 042
     Dates: start: 20120601
  6. PERTUZUMAB [Suspect]
     Dosage: MAINTANANCE DOSE
     Route: 042
  7. DOCETAXEL [Suspect]
     Indication: BREAST CANCER
     Dosage: LAST DOSE PRIOR TO SAE:29/JUN/2012
     Route: 042
     Dates: start: 20120601
  8. ACETAMINOPHEN [Concomitant]
     Dates: start: 20120330
  9. HERCEPTIN [Suspect]
     Dosage: MAINTANANCE DOSE
     Route: 042

REACTIONS (1)
  - PULMONARY EMBOLISM [None]
